FAERS Safety Report 6351276-5 (Version None)
Quarter: 2009Q3

REPORT INFORMATION
  Report Type: 
  Country: None (occurrence: None)
  Receive Date: 20090912
  Receipt Date: 20090622
  Transmission Date: 20100115
  Serious: No
  Sender: FDA-Public Use
  Company Number: US-ABBOTT-07P-163-0378573-00

PATIENT
  Sex: Female
  Weight: 62.198 kg

DRUGS (7)
  1. HUMIRA [Suspect]
     Indication: CROHN'S DISEASE
     Route: 058
     Dates: start: 20061123
  2. HUMIRA [Suspect]
     Route: 058
     Dates: start: 20061011, end: 20061025
  3. HUMIRA [Suspect]
     Route: 058
     Dates: start: 20061109, end: 20061123
  4. VITAMIN B-12 [Concomitant]
     Indication: CROHN'S DISEASE
     Route: 030
  5. BUDESONIDE [Concomitant]
     Indication: CROHN'S DISEASE
     Route: 048
  6. METHOTREXATE [Concomitant]
     Indication: CROHN'S DISEASE
     Route: 048
  7. FLINTSTONES MULTIPLE VITAMINS [Concomitant]
     Indication: VITAMIN SUPPLEMENTATION
     Route: 048

REACTIONS (2)
  - INCORRECT DOSE ADMINISTERED [None]
  - INJECTION SITE EXTRAVASATION [None]
